FAERS Safety Report 24924305 (Version 1)
Quarter: 2025Q1

REPORT INFORMATION
  Report Type: Report from Study
  Country: IT (occurrence: IT)
  Receive Date: 20250204
  Receipt Date: 20250204
  Transmission Date: 20250409
  Serious: Yes (Hospitalization, Other)
  Sender: MYLAN
  Company Number: IT-SA-2024SA355884

PATIENT
  Age: 69 Year
  Sex: Female
  Weight: 69 kg

DRUGS (10)
  1. POMALIDOMIDE [Suspect]
     Active Substance: POMALIDOMIDE
     Indication: Plasma cell myeloma refractory
     Dosage: 4 MILLIGRAM, QD
     Route: 065
     Dates: start: 20240821, end: 20240910
  2. POMALIDOMIDE [Suspect]
     Active Substance: POMALIDOMIDE
     Dosage: 4 MILLIGRAM, QD
     Route: 065
     Dates: start: 20240919, end: 20241007
  3. POMALIDOMIDE [Suspect]
     Active Substance: POMALIDOMIDE
     Dosage: 4 MILLIGRAM, QD
     Route: 065
     Dates: start: 20241017, end: 20241106
  4. ISATUXIMAB [Suspect]
     Active Substance: ISATUXIMAB
     Indication: Plasma cell myeloma refractory
     Dosage: 10 MILLIGRAM/KILOGRAM, QW
     Route: 042
     Dates: start: 20240821, end: 20240911
  5. ISATUXIMAB [Suspect]
     Active Substance: ISATUXIMAB
     Dosage: 20 MILLIGRAM/KILOGRAM, QW (10 MILLIGRAM/KILOGRAM, BIW)
     Route: 042
     Dates: start: 20240919, end: 20241003
  6. ISATUXIMAB [Suspect]
     Active Substance: ISATUXIMAB
     Dosage: 20 MILLIGRAM/KILOGRAM, QW (10 MILLIGRAM/KILOGRAM, BIW)
     Route: 042
     Dates: start: 20241017, end: 20241031
  7. ISATUXIMAB [Suspect]
     Active Substance: ISATUXIMAB
     Dosage: 20 MILLIGRAM/KILOGRAM, QW (10 MILLIGRAM/KILOGRAM, BIW)
     Route: 042
     Dates: start: 20241114, end: 20241128
  8. DEXAMETHASONE [Suspect]
     Active Substance: DEXAMETHASONE
     Indication: Plasma cell myeloma refractory
     Dosage: 80 MILLIGRAM, QW (40 MG, BIW)
     Route: 065
     Dates: start: 20240821, end: 20240911
  9. DEXAMETHASONE [Suspect]
     Active Substance: DEXAMETHASONE
     Dosage: 80 MILLIGRAM, QW (40 MG, BIW)
     Route: 065
     Dates: start: 20240919, end: 20241003
  10. DEXAMETHASONE [Suspect]
     Active Substance: DEXAMETHASONE
     Dosage: 80 MILLIGRAM, QW (40 MG, BIW)
     Route: 065
     Dates: start: 20241017, end: 20241031

REACTIONS (2)
  - Dystonia [Recovered/Resolved]
  - Neutropenia [Recovered/Resolved]

NARRATIVE: CASE EVENT DATE: 20240911
